FAERS Safety Report 5385043-6 (Version None)
Quarter: 2007Q3

REPORT INFORMATION
  Report Type: 
  Country: None (occurrence: None)
  Receive Date: 20070712
  Receipt Date: 20070704
  Transmission Date: 20080115
  Serious: Yes (Hospitalization)
  Sender: FDA-Public Use
  Company Number: PHBS2007JP11513

PATIENT
  Age: 14 Day
  Sex: Male

DRUGS (6)
  1. CYCLOSPORINE [Suspect]
     Indication: HISTIOCYTOSIS HAEMATOPHAGIC
     Dosage: 3 MG/KG/D
     Route: 065
  2. CYCLOSPORINE [Suspect]
     Dosage: 2 MG/KG/D
     Route: 065
  3. CYCLOSPORINE [Suspect]
     Dosage: 1 MG/KG/D
     Route: 065
  4. PREDONINE [Concomitant]
     Indication: HISTIOCYTOSIS HAEMATOPHAGIC
     Route: 042
  5. ACYCLOVIR [Concomitant]
     Dosage: 60 MG/KG/D
     Route: 065
  6. ACYCLOVIR [Concomitant]
     Dosage: 40 MG/KG/D
     Route: 065

REACTIONS (4)
  - CARDIAC FAILURE CONGESTIVE [None]
  - GENERALISED OEDEMA [None]
  - RENAL FAILURE ACUTE [None]
  - RESPIRATORY DISTRESS [None]
